FAERS Safety Report 8076936-X (Version None)
Quarter: 2011Q4

REPORT INFORMATION
  Report Type: 
  Country: None (occurrence: None)
  Receive Date: 20111221
  Receipt Date: 20110519
  Transmission Date: 20120403
  Serious: Yes (Hospitalization)
  Sender: FDA-Public Use
  Company Number: PHHY2011US43543

PATIENT
  Age: 29 Year
  Sex: Female
  Weight: 69.8 kg

DRUGS (1)
  1. EXJADE [Suspect]
     Dosage: 1000 MG, QD, ORAL
     Route: 048
     Dates: start: 20110315

REACTIONS (2)
  - DIZZINESS [None]
  - HAEMATOCHEZIA [None]
